FAERS Safety Report 9643496 (Version 2)
Quarter: 2014Q1

REPORT INFORMATION
  Report Type: Report from Study
  Country: JP (occurrence: JP)
  Receive Date: 20131024
  Receipt Date: 20140115
  Transmission Date: 20141002
  Serious: Yes (Hospitalization, Other)
  Sender: FDA-Public Use
  Company Number: JP-JNJFOC-20131011697

PATIENT
  Age: 71 Year
  Sex: Female
  Weight: 67 kg

DRUGS (18)
  1. SIMPONI [Suspect]
     Indication: RHEUMATOID ARTHRITIS
     Route: 058
     Dates: start: 20130725, end: 20130725
  2. SIMPONI [Suspect]
     Indication: RHEUMATOID ARTHRITIS
     Route: 058
     Dates: start: 20130627, end: 20130627
  3. SIMPONI [Suspect]
     Indication: RHEUMATOID ARTHRITIS
     Route: 058
     Dates: start: 20130516, end: 20130516
  4. SIMPONI [Suspect]
     Indication: RHEUMATOID ARTHRITIS
     Route: 058
     Dates: start: 20130418, end: 20130418
  5. SIMPONI [Suspect]
     Indication: RHEUMATOID ARTHRITIS
     Route: 058
     Dates: start: 20130319, end: 20130319
  6. SIMPONI [Suspect]
     Indication: RHEUMATOID ARTHRITIS
     Route: 058
     Dates: start: 20130822, end: 20130822
  7. METHOTREXATE [Suspect]
     Indication: RHEUMATOID ARTHRITIS
     Route: 065
     Dates: start: 20080410
  8. ACICLOVIR [Suspect]
     Indication: HERPES ZOSTER
     Route: 041
     Dates: start: 20130917, end: 20130918
  9. ACICLOVIR [Suspect]
     Indication: HERPES ZOSTER
     Dosage: 500MG IN MORNING, 250MG IN THE??EVENING
     Route: 041
     Dates: start: 20130912, end: 20130916
  10. LENDEM [Concomitant]
     Indication: INSOMNIA
     Route: 048
  11. BUCILLAMINE [Concomitant]
     Indication: RHEUMATOID ARTHRITIS
     Route: 048
  12. LOXOPROFEN SODIUM [Concomitant]
     Indication: RHEUMATOID ARTHRITIS
     Route: 065
  13. LOXONIN [Concomitant]
     Indication: RHEUMATOID ARTHRITIS
     Route: 062
  14. FOLIAMIN [Concomitant]
     Indication: PROPHYLAXIS
     Route: 065
  15. FAMOTIDINE [Concomitant]
     Indication: PROPHYLAXIS
     Route: 048
  16. DEPAS [Concomitant]
     Indication: INSOMNIA
     Route: 048
  17. NEXIUM [Concomitant]
     Indication: GASTROOESOPHAGEAL REFLUX DISEASE
     Route: 048
  18. XYZAL [Concomitant]
     Indication: PROPHYLAXIS
     Route: 048

REACTIONS (2)
  - Herpes zoster [Recovered/Resolved]
  - Transaminases increased [Recovering/Resolving]
